FAERS Safety Report 9475634 (Version 1)
Quarter: 2013Q3

REPORT INFORMATION
  Report Type: Spontaneous
  Country: US (occurrence: None)
  Receive Date: 20130809
  Receipt Date: 20130809
  Transmission Date: 20140515
  Serious: Yes (Other)
  Sender: FDA-Public Use
  Company Number: 2013037212

PATIENT
  Sex: Male

DRUGS (1)
  1. BERINERT [Suspect]

REACTIONS (3)
  - Drug ineffective [None]
  - Hypertension [None]
  - Malaise [None]
